FAERS Safety Report 8116666-9 (Version None)
Quarter: 2012Q1

REPORT INFORMATION
  Report Type: 
  Country: None (occurrence: None)
  Receive Date: 20120206
  Receipt Date: 20120125
  Transmission Date: 20120608
  Serious: Yes (Hospitalization)
  Sender: FDA-Public Use
  Company Number: PHHO2010JP03855

PATIENT
  Sex: Male
  Weight: 76 kg

DRUGS (9)
  1. ACTOS [Concomitant]
     Dosage: 30 MG, QD
     Dates: start: 20110929
  2. ZETIA [Concomitant]
  3. NIZATIDINE [Concomitant]
     Dosage: UNK
  4. ALISKIREN [Suspect]
     Indication: CARDIOVASCULAR DISORDER
     Dosage: UNK
     Route: 048
     Dates: start: 20080610, end: 20111226
  5. AMLODIPINE [Concomitant]
     Dosage: UNK
  6. CANDESARTAN CILEXETIL [Concomitant]
     Dosage: UNK
  7. PLAVIX [Concomitant]
     Dosage: UNK
  8. NOVORAPID [Concomitant]
     Dosage: UNK
  9. ASPIRIN [Concomitant]
     Dosage: UNK

REACTIONS (4)
  - COLONIC POLYP [None]
  - CORONARY ARTERY OCCLUSION [None]
  - CHEST PAIN [None]
  - ANGINA PECTORIS [None]
